FAERS Safety Report 11220223 (Version 1)
Quarter: 2015Q2

REPORT INFORMATION
  Report Type: Spontaneous
  Country: US (occurrence: US)
  Receive Date: 20150625
  Receipt Date: 20150625
  Transmission Date: 20150821
  Serious: No
  Sender: FDA-Public Use
  Company Number: US-EXELIXIS-CABO-14003897

PATIENT
  Age: 52 Year
  Sex: Male
  Weight: 84 kg

DRUGS (12)
  1. COMETRIQ [Suspect]
     Active Substance: CABOZANTINIB S-MALATE
     Indication: THYROID CANCER
     Dosage: 140 MG, QD
     Route: 048
     Dates: start: 20140109, end: 20140221
  2. COMETRIQ [Suspect]
     Active Substance: CABOZANTINIB S-MALATE
     Dosage: 100 MG, QD
     Route: 048
     Dates: start: 20140228, end: 20140320
  3. COMETRIQ [Suspect]
     Active Substance: CABOZANTINIB S-MALATE
     Dosage: 140 MG, QD
     Route: 048
     Dates: start: 201402, end: 201410
  4. PAXIL [Concomitant]
     Active Substance: PAROXETINE HYDROCHLORIDE
  5. GABAPENTIN. [Concomitant]
     Active Substance: GABAPENTIN
  6. LEVOTHYROXINE [Concomitant]
     Active Substance: LEVOTHYROXINE
  7. BACLOFEN. [Concomitant]
     Active Substance: BACLOFEN
  8. COMETRIQ [Suspect]
     Active Substance: CABOZANTINIB S-MALATE
     Dosage: 60 MG, QD
     Route: 048
     Dates: start: 20150319, end: 20150322
  9. COMETRIQ [Suspect]
     Active Substance: CABOZANTINIB S-MALATE
     Dosage: 60 MG, QD
     Dates: start: 20141022, end: 20150318
  10. COMETRIQ [Suspect]
     Active Substance: CABOZANTINIB S-MALATE
     Dosage: 60 MG, QD
     Route: 048
     Dates: start: 20150323
  11. SWISH AND SWALLOW [Concomitant]
  12. CALCITROL [Concomitant]
     Active Substance: CALCITRIOL

REACTIONS (15)
  - Dysphagia [Unknown]
  - Gingival pain [Unknown]
  - Fatigue [Recovered/Resolved]
  - Dehydration [Unknown]
  - Ageusia [Unknown]
  - Lactose intolerance [Unknown]
  - Eating disorder [Unknown]
  - Oral discomfort [Unknown]
  - Blood calcium decreased [Recovered/Resolved]
  - Dry mouth [Unknown]
  - Thirst [Unknown]
  - Glossodynia [Unknown]
  - Oropharyngeal pain [Unknown]
  - Diarrhoea [Unknown]
  - Blood potassium decreased [Recovered/Resolved]

NARRATIVE: CASE EVENT DATE: 20140111
